FAERS Safety Report 8222131-0 (Version None)
Quarter: 2012Q1

REPORT INFORMATION
  Report Type: 
  Country: None (occurrence: None)
  Receive Date: 20120320
  Receipt Date: 20120308
  Transmission Date: 20120608
  Serious: Yes (Other)
  Sender: FDA-Public Use
  Company Number: US-MERCK-1110USA00182

PATIENT
  Age: 76 Year
  Sex: Female
  Weight: 65 kg

DRUGS (2)
  1. FOSAMAX [Suspect]
     Indication: OSTEOPOROSIS
     Route: 048
     Dates: start: 20041101, end: 20090801
  2. ALENDRONATE SODIUM [Suspect]
     Route: 065

REACTIONS (30)
  - GALLBLADDER DISORDER [None]
  - ADJUSTMENT DISORDER WITH DEPRESSED MOOD [None]
  - ESSENTIAL HYPERTENSION [None]
  - BRONCHITIS [None]
  - HAEMORRHOIDS [None]
  - HYPERLIPIDAEMIA [None]
  - MUSCULOSKELETAL DISORDER [None]
  - ABNORMAL LOSS OF WEIGHT [None]
  - ACUTE SINUSITIS [None]
  - OEDEMA PERIPHERAL [None]
  - ANGINA PECTORIS [None]
  - ARTHROPATHY [None]
  - ASTHMA [None]
  - ARTHRITIS [None]
  - BONE DISORDER [None]
  - DENTAL CARIES [None]
  - TOOTH DISORDER [None]
  - RADICULOPATHY [None]
  - OSTEONECROSIS OF JAW [None]
  - ANXIETY [None]
  - GINGIVAL RECESSION [None]
  - HYPERHIDROSIS [None]
  - OSTEOARTHRITIS [None]
  - GENERALISED OEDEMA [None]
  - INTERVERTEBRAL DISC DEGENERATION [None]
  - COUGH [None]
  - ROAD TRAFFIC ACCIDENT [None]
  - SLEEP APNOEA SYNDROME [None]
  - DIABETES MELLITUS INADEQUATE CONTROL [None]
  - GASTROOESOPHAGEAL REFLUX DISEASE [None]
